FAERS Safety Report 18435120 (Version 5)
Quarter: 2024Q4

REPORT INFORMATION
  Report Type: Spontaneous
  Country: IT (occurrence: IT)
  Receive Date: 20201028
  Receipt Date: 20241029
  Transmission Date: 20250114
  Serious: Yes (Life-Threatening, Hospitalization, Other)
  Sender: MYLAN
  Company Number: IT-002147023-NVSC2020IT270596

PATIENT
  Age: 60 Year
  Sex: Female

DRUGS (17)
  1. ASPIRIN [Suspect]
     Active Substance: ASPIRIN
     Indication: Antiplatelet therapy
     Dosage: 100 MILLIGRAM, QD
     Route: 048
  2. FENTANYL [Interacting]
     Active Substance: FENTANYL
     Indication: Product used for unknown indication
     Dosage: 0.1 MILLIGRAM
     Route: 065
  3. EVEROLIMUS [Suspect]
     Active Substance: EVEROLIMUS
     Indication: Acute myocardial infarction
     Dosage: UNK
     Route: 065
  4. EVEROLIMUS [Suspect]
     Active Substance: EVEROLIMUS
     Indication: Acute coronary syndrome
  5. MORPHINE [Interacting]
     Active Substance: MORPHINE
     Indication: Antiplatelet therapy
     Dosage: 3 MILLIGRAM
     Route: 042
  6. ASPIRIN [Suspect]
     Active Substance: ASPIRIN
     Indication: Antiplatelet therapy
     Dosage: 250 MILLIGRAM
     Route: 042
  7. CANGRELOR TETRASODIUM [Suspect]
     Active Substance: CANGRELOR TETRASODIUM
     Indication: Antiplatelet therapy
     Dosage: 30 MICROGRAM/KILOGRAM
     Route: 042
  8. CANGRELOR TETRASODIUM [Suspect]
     Active Substance: CANGRELOR TETRASODIUM
     Dosage: 4 MICROGRAM/KILOGRAM, QMINUTE
     Route: 042
  9. TIROFIBAN [Suspect]
     Active Substance: TIROFIBAN
     Indication: Antiplatelet therapy
     Dosage: 0.4 MICROGRAM/KILOGRAM, QMINUTE
     Route: 042
  10. TIROFIBAN [Suspect]
     Active Substance: TIROFIBAN
     Dosage: 0.1 MICROGRAM/KILOGRAM, QMINUTE
     Route: 042
  11. TICAGRELOR [Interacting]
     Active Substance: TICAGRELOR
     Indication: Acute coronary syndrome
     Dosage: 180 MILLIGRAM (LOADING DOSE OF TICAGRELOR WAS ADMINISTRATED AT THE END OF THE PROCEDURE)
     Route: 065
  12. TICAGRELOR [Interacting]
     Active Substance: TICAGRELOR
     Indication: Antiplatelet therapy
     Dosage: 90 MILLIGRAM
     Route: 065
  13. HEPARIN [Suspect]
     Active Substance: HEPARIN SODIUM
     Indication: Product used for unknown indication
     Dosage: UNK
     Route: 065
  14. WARFARIN [Suspect]
     Active Substance: WARFARIN
     Indication: Antiplatelet therapy
     Dosage: 30 MICROGRAM/KILOGRAM
     Route: 042
  15. ATORVASTATIN [Concomitant]
     Active Substance: ATORVASTATIN
     Indication: Product used for unknown indication
     Dosage: 80 MILLIGRAM, QD
     Route: 065
  16. RAMIPRIL [Concomitant]
     Active Substance: RAMIPRIL
     Indication: Product used for unknown indication
     Dosage: 5 MILLIGRAM, QD
     Route: 065
  17. BISOPROLOL [Concomitant]
     Active Substance: BISOPROLOL\BISOPROLOL FUMARATE
     Indication: Product used for unknown indication
     Dosage: 2.5 MILLIGRAM, QD
     Route: 065

REACTIONS (16)
  - Drug level decreased [Unknown]
  - Thrombocytopenia [Unknown]
  - Eosinophil cationic protein increased [Unknown]
  - Acute myocardial infarction [Unknown]
  - Eosinophilia [Unknown]
  - Hypersensitivity [Unknown]
  - Vascular stent thrombosis [Unknown]
  - Nausea [Unknown]
  - Hypotension [Unknown]
  - Erythema [Unknown]
  - Electrocardiogram ST segment elevation [Unknown]
  - Colitis ischaemic [Unknown]
  - Rectal haemorrhage [Unknown]
  - Drug interaction [Unknown]
  - Off label use [Unknown]
  - Product use in unapproved indication [Unknown]
